FAERS Safety Report 7328177-9 (Version None)
Quarter: 2011Q1

REPORT INFORMATION
  Report Type: 
  Country: None (occurrence: None)
  Receive Date: 20110303
  Receipt Date: 20110303
  Transmission Date: 20110831
  Serious: Yes (Hospitalization)
  Sender: FDA-Public Use
  Company Number: PHHO2007ES15938

PATIENT
  Sex: Female
  Weight: 40 kg

DRUGS (4)
  1. LOPERAMIDE [Concomitant]
     Dates: start: 20070627, end: 20070924
  2. OMEPRAZOLE [Concomitant]
  3. SANDOSTATIN LAR [Suspect]
     Indication: CARCINOID TUMOUR
     Route: 030
     Dates: start: 20070717, end: 20070911
  4. PLACEBO [Suspect]
     Indication: CARCINOID TUMOUR
     Dosage: PLACEBO
     Route: 048
     Dates: start: 20070717, end: 20070911

REACTIONS (3)
  - ABDOMINAL PAIN [None]
  - CONSTIPATION [None]
  - INTESTINAL OBSTRUCTION [None]
